FAERS Safety Report 8805041 (Version 1)
Quarter: 2012Q4

REPORT INFORMATION
  Report Type: 
  Country: US (occurrence: US)
  Receive Date: 20120924
  Receipt Date: 20120924
  Transmission Date: 20130627
  Serious: Yes (Death)
  Sender: FDA-Public Use
  Company Number: US-ROCHE-1126771

PATIENT
  Sex: Female

DRUGS (2)
  1. AVASTIN [Suspect]
     Indication: MALIGNANT NEOPLASM OF RENAL PELVIS
     Route: 065
     Dates: start: 20080729
  2. GEMCITABINE [Concomitant]
     Route: 065
     Dates: start: 20080729

REACTIONS (3)
  - Death [Fatal]
  - Full blood count decreased [Unknown]
  - Disease progression [Unknown]
